FAERS Safety Report 5696226-X (Version None)
Quarter: 2008Q2

REPORT INFORMATION
  Report Type: 
  Country: None (occurrence: None)
  Receive Date: 20080407
  Receipt Date: 20080325
  Transmission Date: 20081010
  Serious: Yes (Other)
  Sender: FDA-Public Use
  Company Number: CA-ELI_LILLY_AND_COMPANY-CA200803005852

PATIENT
  Age: 64 Year
  Sex: Female

DRUGS (15)
  1. FORTEO [Suspect]
     Indication: OSTEOPOROSIS
     Dosage: 20 UG, DAILY (1/D)
     Route: 058
     Dates: start: 20070215, end: 20070424
  2. FORTEO [Suspect]
     Dosage: 20 MG, DAILY (1/D)
     Route: 058
     Dates: start: 20070508
  3. PREDNISONE [Concomitant]
  4. ENTROPHEN [Concomitant]
  5. DOXEPIN HCL [Concomitant]
  6. SIBELIUM [Concomitant]
  7. FLONASE [Concomitant]
  8. GEMFIBROZIL [Concomitant]
  9. PARIET [Concomitant]
  10. MIRAPEX [Concomitant]
  11. CALCIUM [Concomitant]
  12. VITAMIN D [Concomitant]
  13. MAGNESIUM [Concomitant]
  14. VITALUX [Concomitant]
  15. VITAMIN B COMPLEX CAP [Concomitant]

REACTIONS (6)
  - BONE DENSITY DECREASED [None]
  - FACIAL PAIN [None]
  - JOINT CREPITATION [None]
  - MIGRAINE [None]
  - PELVIC FRACTURE [None]
  - PELVIC PAIN [None]
